FAERS Safety Report 8616089 (Version 4)
Quarter: 2014Q1

REPORT INFORMATION
  Report Type: Report from Study
  Country: JP (occurrence: JP)
  Receive Date: 20120614
  Receipt Date: 20140109
  Transmission Date: 20141002
  Serious: No
  Sender: FDA-Public Use
  Company Number: JP-JNJFOC-20120604581

PATIENT
  Age: 62 Year
  Sex: Male
  Weight: 64 kg

DRUGS (15)
  1. STELARA [Suspect]
     Indication: PSORIASIS
     Route: 058
     Dates: start: 20111219
  2. STELARA [Suspect]
     Indication: PSORIASIS
     Route: 058
     Dates: start: 20121119
  3. STELARA [Suspect]
     Indication: PSORIASIS
     Route: 058
     Dates: start: 20120827
  4. STELARA [Suspect]
     Indication: PSORIASIS
     Route: 058
     Dates: start: 20120604
  5. STELARA [Suspect]
     Indication: PSORIASIS
     Route: 058
     Dates: start: 20120312
  6. STELARA [Suspect]
     Indication: PSORIASIS
     Route: 058
     Dates: start: 20130204
  7. STELARA [Suspect]
     Indication: PSORIASIS
     Route: 058
     Dates: start: 20110926
  8. STELARA [Suspect]
     Indication: PSORIASIS
     Route: 058
     Dates: start: 20110711
  9. STELARA [Suspect]
     Indication: PSORIASIS
     Route: 058
     Dates: start: 20110613
  10. STELARA [Suspect]
     Indication: PSORIASIS
     Route: 058
     Dates: start: 20130422
  11. STELARA [Suspect]
     Indication: PSORIASIS
     Route: 058
     Dates: start: 20130708
  12. ISONIAZID [Suspect]
     Indication: PROPHYLAXIS
     Dates: start: 20110523, end: 20111219
  13. CICLOSPORIN [Concomitant]
     Dates: start: 20050215, end: 20110610
  14. CLOBETASOL [Concomitant]
     Route: 061
     Dates: end: 20111219
  15. MAXACALCITOL [Concomitant]
     Route: 061
     Dates: end: 20111219

REACTIONS (3)
  - Aspartate aminotransferase increased [Recovering/Resolving]
  - Alanine aminotransferase increased [Recovering/Resolving]
  - Gamma-glutamyltransferase increased [Recovering/Resolving]
